FAERS Safety Report 24648796 (Version 2)
Quarter: 2024Q4

REPORT INFORMATION
  Report Type: Spontaneous
  Country: FR (occurrence: FR)
  Receive Date: 20241121
  Receipt Date: 20241127
  Transmission Date: 20250115
  Serious: Yes (Death, Hospitalization)
  Sender: FRESENIUS KABI
  Company Number: FR-ROCHE-10000033530

PATIENT
  Age: 68 Year
  Sex: Male

DRUGS (8)
  1. PACLITAXEL [Suspect]
     Active Substance: PACLITAXEL
     Indication: Non-small cell lung cancer
     Dosage: ON 02/OCT/2024, MOST RECENT DOSE WAS ADMINISTERED.
     Route: 065
     Dates: start: 20240430
  2. BEVACIZUMAB [Suspect]
     Active Substance: BEVACIZUMAB
     Indication: Non-small cell lung cancer
     Dosage: ON 02/OCT/2024, MOST RECENT DOSE WAS ADMINISTERED.
     Route: 065
     Dates: start: 20240430
  3. ATEZOLIZUMAB [Concomitant]
     Active Substance: ATEZOLIZUMAB
     Indication: Non-small cell lung cancer
     Dosage: ON 02/OCT/2024, MOST RECENT DOSE WAS ADMINISTERED.
     Route: 065
     Dates: start: 20240430
  4. ELIQUIS [Concomitant]
     Active Substance: APIXABAN
     Indication: Product used for unknown indication
  5. VERAPAMIL [Concomitant]
     Active Substance: VERAPAMIL HYDROCHLORIDE
     Indication: Product used for unknown indication
  6. PRAVASTATIN [Concomitant]
     Active Substance: PRAVASTATIN
     Indication: Product used for unknown indication
  7. CANDESARTAN [Concomitant]
     Active Substance: CANDESARTAN
     Indication: Product used for unknown indication
  8. APIXABAN [Concomitant]
     Active Substance: APIXABAN
     Indication: Product used for unknown indication

REACTIONS (3)
  - Malignant neoplasm progression [Fatal]
  - Dyspnoea [Fatal]
  - Embolism arterial [Recovered/Resolved with Sequelae]

NARRATIVE: CASE EVENT DATE: 20240718
